FAERS Safety Report 22811291 (Version 2)
Quarter: 2023Q4

REPORT INFORMATION
  Report Type: Spontaneous
  Country: JP (occurrence: JP)
  Receive Date: 20230810
  Receipt Date: 20231113
  Transmission Date: 20240110
  Serious: Yes (Disabling, Other)
  Sender: FDA-Public Use
  Company Number: JP-GSK-JP2023JPN107604

PATIENT

DRUGS (7)
  1. BENLYSTA [Suspect]
     Active Substance: BELIMUMAB
     Indication: Systemic lupus erythematosus
     Dosage: 200 MG, WE
     Route: 058
     Dates: start: 20180918
  2. TACROLIMUS TABLETS [Concomitant]
     Indication: Systemic lupus erythematosus
     Dosage: 3 MG, QD
     Route: 048
  3. CELLCEPT [Concomitant]
     Active Substance: MYCOPHENOLATE MOFETIL
     Indication: Systemic lupus erythematosus
     Dosage: 2000 MG, QD
     Route: 048
     Dates: start: 20160823
  4. PREDNISOLONE [Concomitant]
     Active Substance: PREDNISOLONE
     Indication: Systemic lupus erythematosus
     Dosage: 10 MG, QD
     Route: 048
     Dates: start: 20180918, end: 20190513
  5. PREDNISOLONE [Concomitant]
     Active Substance: PREDNISOLONE
     Dosage: 9 MG, QD
     Route: 048
     Dates: start: 20190514, end: 20190708
  6. PREDNISOLONE [Concomitant]
     Active Substance: PREDNISOLONE
     Dosage: 8 MG, QD
     Route: 048
     Dates: start: 20190709
  7. PREDNISOLONE [Concomitant]
     Active Substance: PREDNISOLONE
     Dosage: 5 MG, QD
     Route: 048

REACTIONS (2)
  - Cerebral haemorrhage [Not Recovered/Not Resolved]
  - Hemiplegia [Recovered/Resolved with Sequelae]

NARRATIVE: CASE EVENT DATE: 20210208
